FAERS Safety Report 16477575 (Version 1)
Quarter: 2019Q2

REPORT INFORMATION
  Report Type: Spontaneous
  Country: GB (occurrence: GB)
  Receive Date: 20190626
  Receipt Date: 20190626
  Transmission Date: 20190711
  Serious: Yes (Life-Threatening, Hospitalization, Other)
  Sender: FDA-Public Use
  Company Number: GB-ROCHE-2343942

PATIENT
  Age: 82 Year
  Sex: Female
  Weight: 60 kg

DRUGS (25)
  1. LANSOPRAZOLE. [Concomitant]
     Active Substance: LANSOPRAZOLE
  2. GLYCERYL TRINITRATE [Concomitant]
     Active Substance: NITROGLYCERIN
     Route: 065
  3. QUININE SULFATE. [Concomitant]
     Active Substance: QUININE SULFATE
  4. CODEINE PHOSPHATE [Concomitant]
     Active Substance: CODEINE PHOSPHATE
  5. HYDROCORTISONE. [Concomitant]
     Active Substance: HYDROCORTISONE
  6. CHLORPHENAMINE [Concomitant]
     Active Substance: CHLORPHENIRAMINE MALEATE
  7. SYMBICORT [Concomitant]
     Active Substance: BUDESONIDE\FORMOTEROL FUMARATE DIHYDRATE
  8. PARACETAMOL [Concomitant]
     Active Substance: ACETAMINOPHEN
  9. ONDANSETRON [Concomitant]
     Active Substance: ONDANSETRON
  10. RITUXIMAB. [Suspect]
     Active Substance: RITUXIMAB
     Indication: FACTOR VIII DEFICIENCY
     Route: 041
     Dates: start: 20190523, end: 20190523
  11. ACICLOVIR [Concomitant]
     Active Substance: ACYCLOVIR
  12. NITROFURANTOIN. [Concomitant]
     Active Substance: NITROFURANTOIN
  13. DOCUSATE SODIUM. [Concomitant]
     Active Substance: DOCUSATE SODIUM
  14. BUPRENORPHINE. [Concomitant]
     Active Substance: BUPRENORPHINE
     Route: 060
  15. NEBIVOLOL. [Concomitant]
     Active Substance: NEBIVOLOL
  16. TERBUTALINE [Concomitant]
     Active Substance: TERBUTALINE
  17. PREDNISOLONE. [Concomitant]
     Active Substance: PREDNISOLONE
  18. ADCAL D3 [Concomitant]
     Active Substance: CALCIUM CARBONATE\CHOLECALCIFEROL
  19. OBIZUR [Concomitant]
     Active Substance: ANTIHEMOPHILIC FACTOR PORCINE, B-DOMAIN TRUNCATED RECOMBINANT
  20. TRANEXAMIC ACID. [Concomitant]
     Active Substance: TRANEXAMIC ACID
  21. MEPOLIZUMAB [Concomitant]
     Active Substance: MEPOLIZUMAB
  22. LEVOTHYROXINE. [Concomitant]
     Active Substance: LEVOTHYROXINE
  23. COTRIMOXAZOLE [Concomitant]
     Active Substance: SULFAMETHOXAZOLE\TRIMETHOPRIM
  24. SIMVASTATIN. [Concomitant]
     Active Substance: SIMVASTATIN
  25. HYOSCINE BUTYLBROMIDE [Concomitant]
     Active Substance: BUTYLSCOPOLAMINE BROMIDE

REACTIONS (2)
  - Oxygen saturation decreased [Recovered/Resolved]
  - Seizure [Recovered/Resolved]

NARRATIVE: CASE EVENT DATE: 20190523
